FAERS Safety Report 5261965-1 (Version None)
Quarter: 2007Q1

REPORT INFORMATION
  Report Type: 
  Country: None (occurrence: None)
  Receive Date: 20070308
  Receipt Date: 20070227
  Transmission Date: 20070707
  Serious: Yes (Other)
  Sender: FDA-Public Use
  Company Number: 430009M07USA

PATIENT
  Age: 47 Year
  Sex: Female
  Weight: 49.8957 kg

DRUGS (3)
  1. NOVANTRONE [Suspect]
     Indication: MULTIPLE SCLEROSIS
     Dosage: 20 MG, 1 IN 3 MONTHS, INTRAVENOUS
     Route: 042
     Dates: start: 20040501, end: 20060801
  2. PREDNISONE [Concomitant]
  3. CLONAZEPAM [Concomitant]

REACTIONS (2)
  - EJECTION FRACTION DECREASED [None]
  - OEDEMA PERIPHERAL [None]
